FAERS Safety Report 8892050 (Version 2)
Quarter: 2013Q1

REPORT INFORMATION
  Report Type: Spontaneous
  Country: US (occurrence: None)
  Receive Date: 20121031
  Receipt Date: 20121219
  Transmission Date: 20140127
  Serious: Yes (Other)
  Sender: FDA-Public Use
  Company Number: CRC-12-521

PATIENT
  Age: 54 Year
  Sex: Female
  Weight: 75.3 kg

DRUGS (3)
  1. PHENYTOIN SODIUM [Suspect]
     Indication: CONVULSION
     Dosage: 1 CAP 3X/DAY; ORALLY
     Route: 048
     Dates: start: 20121008
  2. TOPAMAX [Suspect]
     Indication: CONVULSION
     Dates: end: 20121008
  3. SEROQUEL [Concomitant]

REACTIONS (1)
  - Diplopia [None]
